FAERS Safety Report 5532912-X (Version None)
Quarter: 2007Q4

REPORT INFORMATION
  Report Type: 
  Country: None (occurrence: None)
  Receive Date: 20071204
  Receipt Date: 20071203
  Transmission Date: 20080405
  Serious: Yes (Death, Hospitalization)
  Sender: FDA-Public Use
  Company Number: JP-BRISTOL-MYERS SQUIBB COMPANY-14001028

PATIENT
  Age: 71 Year
  Sex: Male
  Weight: 54 kg

DRUGS (10)
  1. CISPLATIN [Suspect]
     Indication: PLEURAL MESOTHELIOMA MALIGNANT
     Dosage: ADMINISTERED 80 MG/D(DECREASED DOSE)IV ON 9TH MAY+13TH JUN. DRUG DECIDED TO DISCONTINUED ON 3RD JUL.
     Route: 042
     Dates: start: 20070410, end: 20070410
  2. PANVITAN [Concomitant]
     Dates: start: 20070403
  3. CYANOCOBALAMIN [Concomitant]
     Dates: start: 20070403
  4. LOXONIN [Concomitant]
     Dates: start: 20070306
  5. MUCOSTA [Concomitant]
     Dates: start: 20070306
  6. OXYCONTIN [Concomitant]
     Dates: start: 20070401
  7. NOVAMIN [Concomitant]
     Dates: start: 20070401
  8. GLYSENNID [Concomitant]
     Dates: start: 20070401
  9. FOLIC ACID [Concomitant]
     Dates: start: 20070403
  10. VITAMIN B-12 [Concomitant]
     Dates: start: 20070403

REACTIONS (4)
  - MALIGNANT NEOPLASM PROGRESSION [None]
  - NAUSEA [None]
  - VOMITING [None]
  - WEIGHT DECREASED [None]
